FAERS Safety Report 21205655 (Version 2)
Quarter: 2022Q3

REPORT INFORMATION
  Report Type: Report from Study
  Country: RU (occurrence: RU)
  Receive Date: 20220812
  Receipt Date: 20220903
  Transmission Date: 20221027
  Serious: Yes (Death, Other)
  Sender: FDA-Public Use
  Company Number: RU-Nexus Pharma-000120

PATIENT

DRUGS (1)
  1. BUSULFAN [Suspect]
     Active Substance: BUSULFAN
     Indication: Nijmegen breakage syndrome
     Dosage: LOW-DOSE

REACTIONS (1)
  - Adenoviral hepatitis [Fatal]
